FAERS Safety Report 14275765 (Version 2)
Quarter: 2018Q1

REPORT INFORMATION
  Report Type: Spontaneous
  Country: JP (occurrence: JP)
  Receive Date: 20171212
  Receipt Date: 20180122
  Transmission Date: 20180508
  Serious: Yes (Other)
  Sender: FDA-Public Use
  Company Number: JP-LANNETT COMPANY, INC.-JP-2017LAN001243

PATIENT
  Sex: Female
  Weight: 50 kg

DRUGS (12)
  1. ARIPIPRAZOLE. [Suspect]
     Active Substance: ARIPIPRAZOLE
     Dosage: 18 MG, UNK
     Route: 048
     Dates: start: 20070328, end: 20070731
  2. ARIPIPRAZOLE. [Suspect]
     Active Substance: ARIPIPRAZOLE
     Dosage: 21 MG, UNK
     Route: 048
     Dates: start: 20070801, end: 20091208
  3. ARIPIPRAZOLE. [Suspect]
     Active Substance: ARIPIPRAZOLE
     Dosage: 6 MG, UNK
     Route: 048
     Dates: start: 20100107, end: 20100720
  4. NITRAZEPAM [Suspect]
     Active Substance: NITRAZEPAM
     Indication: INSOMNIA
     Dosage: 5 MG, UNK
     Route: 048
     Dates: start: 2006
  5. SULPIRIDE [Suspect]
     Active Substance: SULPIRIDE
     Indication: EMOTIONAL DISTRESS
     Dosage: 50 MG, UNK
     Route: 048
     Dates: start: 2006
  6. QUETIAPINE FUMARATE. [Suspect]
     Active Substance: QUETIAPINE FUMARATE
     Indication: EMOTIONAL DISTRESS
     Dosage: 25 MG, UNK
     Route: 048
     Dates: start: 2006
  7. FLUVOXAMINE MALEATE. [Suspect]
     Active Substance: FLUVOXAMINE MALEATE
     Indication: EMOTIONAL DISTRESS
     Dosage: 25 MG, UNK
     Route: 048
     Dates: start: 2006
  8. ARIPIPRAZOLE. [Suspect]
     Active Substance: ARIPIPRAZOLE
     Indication: EMOTIONAL DISTRESS
     Dosage: 24 MG, UNK
     Route: 048
     Dates: start: 20061108, end: 20070327
  9. ARIPIPRAZOLE. [Suspect]
     Active Substance: ARIPIPRAZOLE
     Dosage: 6 MG, UNK
     Route: 048
     Dates: start: 201009
  10. ARIPIPRAZOLE. [Suspect]
     Active Substance: ARIPIPRAZOLE
     Indication: AFFECT LABILITY
     Dosage: 30 MG, UNK
     Route: 048
     Dates: start: 20061011, end: 20061024
  11. ABILIFY [Suspect]
     Active Substance: ARIPIPRAZOLE
     Indication: EMOTIONAL DISTRESS
     Dosage: 12 MG, UNK
     Route: 048
     Dates: start: 20060913, end: 20061010
  12. PEROSPIRONE HYDROCHLORIDE [Suspect]
     Active Substance: PEROSPIRONE HYDROCHLORIDE
     Indication: EMOTIONAL DISTRESS
     Dosage: 8 MG, UNK
     Route: 048
     Dates: start: 2006

REACTIONS (1)
  - Abortion [Recovered/Resolved]

NARRATIVE: CASE EVENT DATE: 20090808
